FAERS Safety Report 7372662-0 (Version None)
Quarter: 2011Q1

REPORT INFORMATION
  Report Type: 
  Country: None (occurrence: None)
  Receive Date: 20110315
  Receipt Date: 20110304
  Transmission Date: 20110831
  Serious: Yes (Other)
  Sender: FDA-Public Use
  Company Number: 027264

PATIENT
  Sex: Male

DRUGS (6)
  1. ALDACTONE [Concomitant]
  2. AMLODIN [Concomitant]
  3. BISOPROLOL FUMARATE [Concomitant]
  4. XYZAL [Suspect]
     Indication: PRURITUS
     Dosage: (5 MG QD ORAL)
     Route: 048
     Dates: start: 20101214, end: 20110113
  5. WARFARIN SODIUM [Concomitant]
  6. FUROSEMIDE [Concomitant]

REACTIONS (6)
  - DECREASED APPETITE [None]
  - GAMMA-GLUTAMYLTRANSFERASE INCREASED [None]
  - BLOOD ALKALINE PHOSPHATASE INCREASED [None]
  - LIVER DISORDER [None]
  - ALANINE AMINOTRANSFERASE INCREASED [None]
  - ASPARTATE AMINOTRANSFERASE INCREASED [None]
